FAERS Safety Report 11993096 (Version 1)
Quarter: 2016Q1

REPORT INFORMATION
  Report Type: Report from Study
  Country: US (occurrence: US)
  Receive Date: 20160203
  Receipt Date: 20160203
  Transmission Date: 20160526
  Serious: Yes (Death, Other)
  Sender: FDA-Public Use
  Company Number: US-GILEAD-2016-0195486

PATIENT
  Age: 62 Year
  Sex: Female

DRUGS (6)
  1. VITAMIN D                          /00107901/ [Concomitant]
     Active Substance: ERGOCALCIFEROL
  2. CITALOPRAM [Concomitant]
     Active Substance: CITALOPRAM HYDROBROMIDE
  3. SUCRALFATE. [Concomitant]
     Active Substance: SUCRALFATE
  4. AMBRISENTAN [Suspect]
     Active Substance: AMBRISENTAN
     Indication: PULMONARY ARTERIAL HYPERTENSION
     Dosage: 10 MG, QD
     Route: 065
     Dates: start: 20150609
  5. DIGOXIN. [Concomitant]
     Active Substance: DIGOXIN
  6. ADCIRCA [Suspect]
     Active Substance: TADALAFIL
     Indication: PRODUCT USED FOR UNKNOWN INDICATION
     Route: 065

REACTIONS (4)
  - Renal failure [Unknown]
  - Disease progression [Fatal]
  - Hepatic failure [Unknown]
  - Cardiac failure [Unknown]

NARRATIVE: CASE EVENT DATE: 20160102
